FAERS Safety Report 8616966-X (Version None)
Quarter: 2012Q3

REPORT INFORMATION
  Report Type: 
  Country: None (occurrence: None)
  Receive Date: 20120823
  Receipt Date: 20120813
  Transmission Date: 20120928
  Serious: Yes (Hospitalization, Disabling, Other)
  Sender: FDA-Public Use
  Company Number: US-009507513-2010SP015492

PATIENT

DRUGS (3)
  1. NUVARING [Suspect]
     Indication: MENSTRUATION IRREGULAR
     Dosage: UNK
     Route: 067
     Dates: start: 20090908, end: 20091101
  2. NUVARING [Suspect]
     Indication: CONTRACEPTION
     Dosage: UNK
     Dates: start: 20100101, end: 20100301
  3. NUVARING [Suspect]
     Indication: OLIGOMENORRHOEA

REACTIONS (16)
  - VARICOSE VEIN [None]
  - POST-TRAUMATIC STRESS DISORDER [None]
  - CERVICAL DYSPLASIA [None]
  - PAPILLOMA VIRAL INFECTION [None]
  - PULMONARY EMBOLISM [None]
  - PULMONARY HYPERTENSION [None]
  - LYMPHADENOPATHY [None]
  - DEEP VEIN THROMBOSIS [None]
  - INFECTION [None]
  - MIGRAINE [None]
  - GALLBLADDER DISORDER [None]
  - PHLEBITIS [None]
  - DIABETES MELLITUS [None]
  - MUSCLE RUPTURE [None]
  - SURGERY [None]
  - HYPERTENSION [None]
